FAERS Safety Report 15159691 (Version 2)
Quarter: 2018Q3

REPORT INFORMATION
  Report Type: Spontaneous
  Country: US (occurrence: US)
  Receive Date: 20180718
  Receipt Date: 20180723
  Transmission Date: 20181010
  Serious: Yes (Other)
  Sender: FDA-Public Use
  Company Number: US-PFIZER INC-2018286815

PATIENT
  Age: 65 Year
  Sex: Female
  Weight: 106 kg

DRUGS (6)
  1. GABAPENTIN. [Suspect]
     Active Substance: GABAPENTIN
     Indication: MYALGIA
  2. LISINOPRIL. [Concomitant]
     Active Substance: LISINOPRIL
     Indication: HYPERTENSION
     Dosage: 10 MG, 1X/DAY (IN THE AM)
     Route: 048
     Dates: start: 2017
  3. METOPROLOL. [Concomitant]
     Active Substance: METOPROLOL
     Indication: ATRIAL FIBRILLATION
     Dosage: 75 MG, 1X/DAY [RX IS ONLY 50MG SO SHE TAKES 1.5 TABLETS A DAY]
     Route: 048
  4. ALBUTEROL. [Concomitant]
     Active Substance: ALBUTEROL
     Indication: ASTHMA
     Dosage: UNK, AS NEEDED
     Route: 055
  5. AZELASTINE. [Concomitant]
     Active Substance: AZELASTINE HYDROCHLORIDE
     Indication: HYPERSENSITIVITY
     Dosage: UNK, AS NEEDED (2 SPRAYS UP THE NOSTRIL THAT IS CLOGGED)
     Route: 045
  6. GABAPENTIN. [Suspect]
     Active Substance: GABAPENTIN
     Indication: POLYMYOSITIS
     Dosage: 300 MG, 1X/DAY (AT NIGHT)
     Route: 048
     Dates: start: 2017, end: 201806

REACTIONS (18)
  - Pruritus [Unknown]
  - Drug dependence [Unknown]
  - Gait disturbance [Unknown]
  - Malaise [Unknown]
  - Dermatomyositis [Unknown]
  - Nasopharyngitis [Unknown]
  - Thrombosis [Unknown]
  - Cardiac disorder [Unknown]
  - Immune system disorder [Unknown]
  - Therapeutic response unexpected [Unknown]
  - Arthralgia [Unknown]
  - Paraesthesia [Unknown]
  - Fatigue [Unknown]
  - Myalgia [Not Recovered/Not Resolved]
  - Drug ineffective [Not Recovered/Not Resolved]
  - Herpes zoster [Unknown]
  - Somnolence [Recovered/Resolved]
  - Pruritus [Unknown]

NARRATIVE: CASE EVENT DATE: 2017
